FAERS Safety Report 20192313 (Version 2)
Quarter: 2021Q4

REPORT INFORMATION
  Report Type: Spontaneous
  Country: JP (occurrence: JP)
  Receive Date: 20211216
  Receipt Date: 20211228
  Transmission Date: 20220303
  Serious: Yes (Other)
  Sender: FDA-Public Use
  Company Number: JP-CHUGAI-2021030836

PATIENT
  Age: 8 Decade

DRUGS (2)
  1. TECENTRIQ [Suspect]
     Active Substance: ATEZOLIZUMAB
     Indication: Hepatocellular carcinoma
     Dosage: 1200 MILLIGRAM, SINGLE
     Route: 041
     Dates: start: 20211126
  2. AVASTIN [Suspect]
     Active Substance: BEVACIZUMAB
     Indication: Hepatocellular carcinoma
     Dosage: 15 MILLIGRAM/KILOGRAM
     Route: 041
     Dates: start: 20211126

REACTIONS (5)
  - Disseminated intravascular coagulation [Unknown]
  - Interstitial lung disease [Recovered/Resolved]
  - Infection [Unknown]
  - Pyrexia [Recovered/Resolved]
  - Hypothyroidism [Recovering/Resolving]

NARRATIVE: CASE EVENT DATE: 20211127
